FAERS Safety Report 25665186 (Version 2)
Quarter: 2025Q3

REPORT INFORMATION
  Report Type: Report from Study
  Country: PE (occurrence: PE)
  Receive Date: 20250811
  Receipt Date: 20250813
  Transmission Date: 20251021
  Serious: Yes (Death, Other)
  Sender: DAIICHI
  Company Number: PE-AstraZeneca-CH-00923211A

PATIENT
  Age: 48 Year
  Sex: Female

DRUGS (1)
  1. ENHERTU [Suspect]
     Active Substance: FAM-TRASTUZUMAB DERUXTECAN-NXKI
     Indication: Breast cancer
     Route: 042
     Dates: start: 20250111

REACTIONS (3)
  - Death [Fatal]
  - Dyspnoea [Recovering/Resolving]
  - Fluid retention [Unknown]

NARRATIVE: CASE EVENT DATE: 20250723
